FAERS Safety Report 8417421-2 (Version None)
Quarter: 2012Q2

REPORT INFORMATION
  Report Type: 
  Country: None (occurrence: None)
  Receive Date: 20120606
  Receipt Date: 20120601
  Transmission Date: 20120825
  Serious: Yes (Death, Congenital Anomaly, Other)
  Sender: FDA-Public Use
  Company Number: US-PFIZER INC-2008049876

PATIENT
  Sex: Female
  Weight: 2.64 kg

DRUGS (11)
  1. BENADRYL [Concomitant]
     Dosage: UNK
     Route: 064
  2. ACETAMINOPHEN [Concomitant]
     Dosage: UNK
     Route: 064
  3. ROBITUSSIN ^ROBINS^ [Concomitant]
     Dosage: UNK
     Route: 064
  4. ZITHROMAX [Concomitant]
     Dosage: UNK
     Route: 064
     Dates: start: 20031104
  5. KAOPECTATE [Concomitant]
     Dosage: UNK
     Route: 064
  6. LEXAPRO [Suspect]
     Dosage: 10 MG, 1X/DAY
     Route: 064
     Dates: start: 20030629
  7. MULTI-VITAMINS [Concomitant]
     Dosage: UNK
     Route: 064
     Dates: start: 20030629
  8. ZYRTEC [Concomitant]
     Dosage: 10 MG, UNK
     Route: 064
     Dates: start: 20030902
  9. ZOLOFT [Suspect]
     Indication: DEPRESSION
     Dosage: 50 MG, 1X/DAY
     Route: 064
  10. ZOLOFT [Suspect]
     Indication: ANXIETY
  11. REGLAN [Concomitant]
     Dosage: 10 MG, UNK
     Route: 064
     Dates: start: 20030811

REACTIONS (11)
  - MITRAL VALVE HYPOPLASIA [None]
  - ATRIOVENTRICULAR SEPTAL DEFECT [None]
  - RENAL TUBULAR NECROSIS [None]
  - FOETAL EXPOSURE DURING PREGNANCY [None]
  - RIGHT VENTRICULAR HYPERTROPHY [None]
  - LUNG DISORDER [None]
  - PATENT DUCTUS ARTERIOSUS [None]
  - PERSISTENT FOETAL CIRCULATION [None]
  - HEPATIC CONGESTION [None]
  - MULTIPLE CONGENITAL ABNORMALITIES [None]
  - AORTIC VALVE STENOSIS [None]
